FAERS Safety Report 13503904 (Version 2)
Quarter: 2018Q1

REPORT INFORMATION
  Report Type: Spontaneous
  Country: US (occurrence: US)
  Receive Date: 20170502
  Receipt Date: 20180112
  Transmission Date: 20180508
  Serious: Yes (Other)
  Sender: FDA-Public Use
  Company Number: US-JNJFOC-20170324305

PATIENT
  Age: 50 Year
  Sex: Female

DRUGS (13)
  1. IMBRUVICA [Suspect]
     Active Substance: IBRUTINIB
     Indication: CHRONIC LYMPHOCYTIC LEUKAEMIA
     Route: 065
     Dates: start: 201408
  2. NEURONTIN [Concomitant]
     Active Substance: GABAPENTIN
  3. GLIPIZIDE. [Concomitant]
     Active Substance: GLIPIZIDE
  4. NOVOLIN R [Concomitant]
     Active Substance: INSULIN HUMAN
  5. IMBRUVICA [Suspect]
     Active Substance: IBRUTINIB
     Indication: CHRONIC LYMPHOCYTIC LEUKAEMIA
     Route: 065
     Dates: start: 201408
  6. CELEXA [Concomitant]
     Active Substance: CITALOPRAM HYDROBROMIDE
  7. VOLTAREN [Concomitant]
     Active Substance: DICLOFENAC SODIUM
  8. PROTONIX [Concomitant]
     Active Substance: PANTOPRAZOLE SODIUM
  9. COREG [Concomitant]
     Active Substance: CARVEDILOL
  10. IMBRUVICA [Suspect]
     Active Substance: IBRUTINIB
     Indication: CHRONIC LYMPHOCYTIC LEUKAEMIA
     Route: 065
     Dates: start: 20160814
  11. HCTZ [Concomitant]
     Active Substance: HYDROCHLOROTHIAZIDE
  12. SEROQUEL [Concomitant]
     Active Substance: QUETIAPINE FUMARATE
  13. GLYBURIDE. [Concomitant]
     Active Substance: GLYBURIDE

REACTIONS (2)
  - Visual acuity reduced [Recovered/Resolved]
  - Cataract [Recovered/Resolved]

NARRATIVE: CASE EVENT DATE: 201702
